FAERS Safety Report 6073632-5 (Version None)
Quarter: 2009Q1

REPORT INFORMATION
  Report Type: 
  Country: None (occurrence: None)
  Receive Date: 20090211
  Receipt Date: 20090203
  Transmission Date: 20090719
  Serious: Yes (Other)
  Sender: FDA-Public Use
  Company Number: BR-PFIZER INC-2008087425

PATIENT

DRUGS (1)
  1. DEPO-PROVERA [Suspect]
     Dosage: 150MG, FIRST INJECTION
     Dates: start: 20081007, end: 20081007

REACTIONS (4)
  - DIPLOPIA [None]
  - PRURITUS [None]
  - SOMNOLENCE [None]
  - VISUAL ACUITY REDUCED [None]
